FAERS Safety Report 9913402 (Version 1)
Quarter: 2014Q1

REPORT INFORMATION
  Report Type: Spontaneous
  Country: US (occurrence: None)
  Receive Date: 20140212
  Receipt Date: 20140212
  Transmission Date: 20141002
  Serious: Yes (Death, Other)
  Sender: FDA-Public Use
  Company Number: AUR-APL-2014-01155

PATIENT
  Age: 34 Year
  Sex: Male

DRUGS (13)
  1. MIRTAZAPINE [Suspect]
     Indication: PRODUCT USED FOR UNKNOWN INDICATION
  2. CARVEDILOL [Suspect]
     Indication: PRODUCT USED FOR UNKNOWN INDICATION
  3. TOPIRAMATE (TOPIRAMATE) [Suspect]
     Indication: PRODUCT USED FOR UNKNOWN INDICATION
  4. CLOPIDOGREL (CLOPIDOGREL) [Suspect]
     Indication: PRODUCT USED FOR UNKNOWN INDICATION
  5. SIMVASTATIN (SIMVASTATIN) [Suspect]
     Indication: PRODUCT USED FOR UNKNOWN INDICATION
  6. ALPRAZOLAM (ALPRAZOLAM) [Suspect]
     Indication: PRODUCT USED FOR UNKNOWN INDICATION
  7. HYDROCODONE+PARACETAMOL (VICODIN) [Suspect]
     Indication: PRODUCT USED FOR UNKNOWN INDICATION
  8. PROPRANOLOL (PROPRANOLOL) [Suspect]
     Indication: PRODUCT USED FOR UNKNOWN INDICATION
     Route: 048
  9. LURASIDONE [Suspect]
     Indication: PRODUCT USED FOR UNKNOWN INDICATION
  10. RANOLAZINE [Suspect]
     Indication: PRODUCT USED FOR UNKNOWN INDICATION
  11. MILNACIPRAN (MILNACIPRAN) (MILNACIPRAN) [Suspect]
     Indication: PRODUCT USED FOR UNKNOWN INDICATION
  12. VILAZODONE [Suspect]
     Indication: PRODUCT USED FOR UNKNOWN INDICATION
  13. HYDROXYZINE (HYDROXYZINE) [Suspect]
     Indication: PRODUCT USED FOR UNKNOWN INDICATION

REACTIONS (3)
  - Completed suicide [None]
  - Exposure via ingestion [None]
  - Toxicity to various agents [None]
